FAERS Safety Report 6166356-7 (Version None)
Quarter: 2009Q2

REPORT INFORMATION
  Report Type: 
  Country: None (occurrence: None)
  Receive Date: 20090424
  Receipt Date: 20090416
  Transmission Date: 20091009
  Serious: Yes (Other)
  Sender: FDA-Public Use
  Company Number: CA-JNJFOC-20090404293

PATIENT
  Sex: Female
  Weight: 54.5 kg

DRUGS (3)
  1. REMICADE [Suspect]
     Dosage: TOTAL OF 20 DOSES
     Route: 042
  2. REMICADE [Suspect]
     Indication: CROHN'S DISEASE
     Route: 042
  3. SOLU-CORTEF [Concomitant]
     Indication: PREMEDICATION
     Route: 042

REACTIONS (5)
  - APHTHOUS STOMATITIS [None]
  - ECCHYMOSIS [None]
  - GAIT DISTURBANCE [None]
  - OEDEMA [None]
  - SKIN ULCER [None]
